FAERS Safety Report 11090184 (Version 1)
Quarter: 2015Q2

REPORT INFORMATION
  Report Type: Spontaneous
  Country: FI (occurrence: FI)
  Receive Date: 20150505
  Receipt Date: 20150505
  Transmission Date: 20150821
  Serious: Yes (Other)
  Sender: FDA-Public Use
  Company Number: FI-PFIZER INC-2015145317

PATIENT
  Age: 36 Year
  Sex: Female

DRUGS (2)
  1. SALAZOPYRIN [Suspect]
     Active Substance: SULFASALAZINE
     Dosage: UNK
     Dates: start: 20150417, end: 201504
  2. PNEUMOCOCCAL VACCINE [Concomitant]
     Active Substance: PNEUMOCOCCAL VACCINE POLYVALENT

REACTIONS (4)
  - Erythema [Unknown]
  - Dyspnoea [Unknown]
  - Vomiting [Unknown]
  - Purpura [Unknown]

NARRATIVE: CASE EVENT DATE: 20150417
